FAERS Safety Report 8078691-6 (Version None)
Quarter: 2012Q1

REPORT INFORMATION
  Report Type: 
  Country: None (occurrence: None)
  Receive Date: 20120124
  Receipt Date: 20120110
  Transmission Date: 20120608
  Serious: Yes (Hospitalization)
  Sender: FDA-Public Use
  Company Number: 008729

PATIENT
  Age: 59 Year
  Sex: Male

DRUGS (5)
  1. ANTIPYRETICS, ANALGESICS AND ANTI-INFLAMMATORY AGENTS(ANTIPYRETICS, AN [Concomitant]
  2. GASTRIC COATING AGENT (GASTRIC COATING AGENT) [Concomitant]
  3. ASPIRIN [Concomitant]
  4. CLOPIDOGREL BISULFATE [Concomitant]
  5. PLETAL [Suspect]
     Indication: PERIPHERAL ARTERIAL OCCLUSIVE DISEASE
     Dosage: 100 MG, DAILY DOSE, ORAL
     Route: 048

REACTIONS (4)
  - HAEMATEMESIS [None]
  - SHOCK HAEMORRHAGIC [None]
  - DUODENAL ULCER HAEMORRHAGE [None]
  - GASTRIC ULCER HAEMORRHAGE [None]
